FAERS Safety Report 25909703 (Version 2)
Quarter: 2025Q4

REPORT INFORMATION
  Report Type: Spontaneous
  Country: US (occurrence: US)
  Receive Date: 20251011
  Receipt Date: 20251109
  Transmission Date: 20260117
  Serious: No
  Sender: SANOFI AVENTIS
  Company Number: US-SA-2025SA300660

PATIENT
  Age: 10 Year
  Sex: Male

DRUGS (17)
  1. FABRAZYME [Suspect]
     Active Substance: AGALSIDASE BETA
     Indication: Fabry^s disease
     Dosage: 45 MG, QOW
     Route: 042
     Dates: start: 202309, end: 202509
  2. AMOXICILLIN [Suspect]
     Active Substance: AMOXICILLIN
     Indication: Pharyngitis streptococcal
     Dosage: UNK
     Dates: start: 202509
  3. SODIUM CHLORIDE [Concomitant]
     Active Substance: SODIUM CHLORIDE
     Dosage: UNK
  4. SODIUM CHLORIDE [Concomitant]
     Active Substance: SODIUM CHLORIDE
     Dosage: UNK
  5. STERILE WATER [Concomitant]
     Active Substance: WATER
     Dosage: UNK
  6. ADVAIR HFA [Concomitant]
     Active Substance: FLUTICASONE PROPIONATE\SALMETEROL XINAFOATE
     Dosage: 2 DF: PUFF, BID
     Route: 055
     Dates: start: 20250708
  7. VITAMIN C [Concomitant]
     Active Substance: ASCORBIC ACID
     Dosage: UNK
  8. LORATADINE [Concomitant]
     Active Substance: LORATADINE
     Dosage: 5 ML, QD
     Route: 048
     Dates: start: 20250708
  9. PROVENTIL [Concomitant]
     Active Substance: ALBUTEROL
     Indication: Wheezing
     Dosage: 2.5 MG, Q6H
     Route: 055
     Dates: start: 20250708
  10. ATARAX P [HYDROXYZINE HYDROCHLORIDE] [Concomitant]
     Indication: Premedication
     Dosage: 1 DF, Q4H
     Route: 048
     Dates: start: 20250708
  11. NYSTATIN [Concomitant]
     Active Substance: NYSTATIN
     Dosage: 5 ML, Q8H
     Dates: start: 20250917, end: 20251027
  12. SINGULAIR [Concomitant]
     Active Substance: MONTELUKAST SODIUM
     Dosage: 1 DF, QD
     Route: 048
     Dates: start: 20250708
  13. FOCALIN XR [Concomitant]
     Active Substance: DEXMETHYLPHENIDATE HYDROCHLORIDE
     Dosage: 5 MG, QD
     Route: 048
     Dates: start: 20250828, end: 20251007
  14. FLONASE [Concomitant]
     Active Substance: FLUTICASONE PROPIONATE
     Dosage: 1 DF, QD
     Dates: start: 20250708
  15. MELATONIN [MELATONIN;PYRIDOXINE HYDROCHLORIDE] [Concomitant]
     Dosage: 3 MG, QD (AT NIGHT AS NEEDED
     Route: 048
     Dates: start: 20250708
  16. THERAGRAN [VITAMINS NOS] [Concomitant]
     Dosage: 1 DF, QD
     Route: 048
  17. MIRALAX [Concomitant]
     Active Substance: POLYETHYLENE GLYCOL 3350
     Dosage: 17 G, QD
     Route: 048
     Dates: start: 20250708

REACTIONS (11)
  - Hand-foot-and-mouth disease [Unknown]
  - Lip pain [Unknown]
  - Lip blister [Unknown]
  - Ulcer [Unknown]
  - Infectious mononucleosis [Unknown]
  - Fatigue [Unknown]
  - Somnolence [Unknown]
  - Abdominal discomfort [Unknown]
  - Drug hypersensitivity [Unknown]
  - Rash [Unknown]
  - Erythema [Unknown]

NARRATIVE: CASE EVENT DATE: 20250901
